FAERS Safety Report 16388408 (Version 9)
Quarter: 2021Q2

REPORT INFORMATION
  Report Type: Spontaneous
  Country: JP (occurrence: JP)
  Receive Date: 20190604
  Receipt Date: 20210522
  Transmission Date: 20210716
  Serious: Yes (Other)
  Sender: FDA-Public Use
  Company Number: JP-AMGEN-JPNSP2019085337

PATIENT
  Age: 68 Year
  Sex: Male
  Weight: 71.7 kg

DRUGS (23)
  1. DARBEPOETIN ALFA [Concomitant]
     Active Substance: DARBEPOETIN ALFA
     Dosage: 5 UG, QW
     Route: 051
     Dates: start: 20200515, end: 20200605
  2. PARSABIV [Suspect]
     Active Substance: ETELCALCETIDE HYDROCHLORIDE
     Dosage: 2.5 MILLIGRAM, 3 TIMES/WK
     Route: 010
     Dates: start: 20200214, end: 20201216
  3. NESP [Concomitant]
     Active Substance: DARBEPOETIN ALFA
     Dosage: 10 UG, QW
     Route: 065
     Dates: end: 20190816
  4. ROCALTROL [Concomitant]
     Active Substance: CALCITRIOL
     Dosage: 0.5 UG, QW
     Route: 065
     Dates: start: 20200330
  5. OXAROL [Concomitant]
     Active Substance: MAXACALCITOL
     Dosage: 2.5 UG, QW, FROM UNK TO 10/12/2018
     Route: 065
  6. RENAGEL [Concomitant]
     Active Substance: SEVELAMER HYDROCHLORIDE
     Dosage: 750 MILLIGRAM, QD
     Route: 065
     Dates: start: 20181109, end: 20200130
  7. PARSABIV [Suspect]
     Active Substance: ETELCALCETIDE HYDROCHLORIDE
     Dosage: 2.5 MILLIGRAM, 3 TIMES/WK
     Route: 010
     Dates: start: 20190520, end: 20191225
  8. DARBEPOETIN ALFA [Concomitant]
     Active Substance: DARBEPOETIN ALFA
     Dosage: 10 UG, QW
     Route: 051
     Dates: start: 20190823
  9. PARSABIV [Suspect]
     Active Substance: ETELCALCETIDE HYDROCHLORIDE
     Indication: HYPERPARATHYROIDISM SECONDARY
     Dosage: 2.5 MILLIGRAM, 3 TIMES/WK
     Route: 010
     Dates: start: 20180730, end: 20180914
  10. PARSABIV [Suspect]
     Active Substance: ETELCALCETIDE HYDROCHLORIDE
     Dosage: 5 MILLIGRAM, 3 TIMES/WK
     Route: 010
     Dates: start: 20191227, end: 20200212
  11. PARSABIV [Suspect]
     Active Substance: ETELCALCETIDE HYDROCHLORIDE
     Dosage: 5 MILLIGRAM, 3 TIMES/WK
     Route: 010
     Dates: start: 20201218
  12. DARBEPOETIN ALFA [Concomitant]
     Active Substance: DARBEPOETIN ALFA
     Dosage: 10 UG, QW
     Route: 051
     Dates: start: 20200925
  13. ROCALTROL [Concomitant]
     Active Substance: CALCITRIOL
     Dosage: 0.5 UG, QW
     Route: 065
     Dates: start: 20181217
  14. PRECIPITATED CALCIUM CARBONATE [Concomitant]
     Active Substance: CALCIUM CARBONATE
     Dosage: 1000 MG, EVERYDAY
     Route: 065
     Dates: start: 20181207, end: 20190314
  15. ALFAROL [Concomitant]
     Active Substance: ALFACALCIDOL
     Dosage: 0.25 UG, EVERYDAY
     Route: 048
     Dates: start: 20190524
  16. FESIN [SACCHARATED IRON OXIDE] [Concomitant]
     Active Substance: IRON SUCROSE
     Dosage: 40 MILLIGRAM, QWK
     Route: 042
     Dates: start: 20200918, end: 20201106
  17. PARSABIV [Suspect]
     Active Substance: ETELCALCETIDE HYDROCHLORIDE
     Dosage: 5 MILLIGRAM, 3 TIMES/WK
     Route: 010
     Dates: start: 20180917, end: 20190517
  18. FOSRENOL [Concomitant]
     Active Substance: LANTHANUM CARBONATE
     Dosage: 1500 MG, EVERYDAY
     Route: 048
     Dates: end: 20200924
  19. FOSRENOL [Concomitant]
     Active Substance: LANTHANUM CARBONATE
     Dosage: 1000 MG, EVERYDAY
     Route: 048
     Dates: start: 20200925, end: 20201008
  20. FOSRENOL [Concomitant]
     Active Substance: LANTHANUM CARBONATE
     Dosage: 500 MG, EVERYDAY
     Route: 048
     Dates: start: 20201009, end: 20210114
  21. ELDECALCITOL [Concomitant]
     Active Substance: ELDECALCITOL
     Indication: OSTEOPOROSIS
     Dosage: UNK
     Route: 065
     Dates: start: 20181217
  22. PRECIPITATED CALCIUM CARBONATE [Concomitant]
     Active Substance: CALCIUM CARBONATE
     Dosage: 1500 MG, EVERYDAY
     Route: 065
     Dates: start: 20190315
  23. FESIN [SACCHARATED IRON OXIDE] [Concomitant]
     Active Substance: IRON SUCROSE
     Dosage: 40 MILLIGRAM, QWK
     Route: 042
     Dates: start: 20190920, end: 20191118

REACTIONS (6)
  - Shunt stenosis [Recovered/Resolved]
  - Arthralgia [Not Recovered/Not Resolved]
  - Renal cyst [Recovering/Resolving]
  - Shunt occlusion [Recovered/Resolved]
  - Shunt stenosis [Recovered/Resolved]
  - Parkinsonism [Recovering/Resolving]

NARRATIVE: CASE EVENT DATE: 20180803
